FAERS Safety Report 23636699 (Version 1)
Quarter: 2024Q1

REPORT INFORMATION
  Report Type: Spontaneous
  Country: US (occurrence: US)
  Receive Date: 20240315
  Receipt Date: 20240315
  Transmission Date: 20240410
  Serious: No
  Sender: FDA-Public Use
  Company Number: US-Covis Pharma GmbH-2024COV00230

PATIENT
  Age: 75 Year
  Sex: Female

DRUGS (4)
  1. RILUTEK [Suspect]
     Active Substance: RILUZOLE
     Route: 048
  2. RELYVRIO [Suspect]
     Active Substance: SODIUM PHENYLBUTYRATE\TAURURSODIOL
     Indication: Amyotrophic lateral sclerosis
     Dosage: 1 DOSAGE FORM 1 SACHET ONCE DAILY FOR 3 WEEKS THEN 1 SACHET TWICE DAILY, 2/DAYS
     Route: 048
     Dates: start: 20230622, end: 20230630
  3. RELYVRIO [Suspect]
     Active Substance: SODIUM PHENYLBUTYRATE\TAURURSODIOL
     Dosage: 1 DOSAGE FORM 1 SACHET ONCE DAILY FOR 3 WEEKS THEN 1 SACHET TWICE DAILY, 2/DAYS
     Route: 048
     Dates: start: 20230418, end: 20230601
  4. RADICAVA [Suspect]
     Active Substance: EDARAVONE

REACTIONS (5)
  - Chills [Unknown]
  - Pyrexia [Unknown]
  - Asthenia [Unknown]
  - Nausea [Unknown]
  - Fatigue [Unknown]
